FAERS Safety Report 20015422 (Version 1)
Quarter: 2021Q4

REPORT INFORMATION
  Report Type: Spontaneous
  Country: US (occurrence: None)
  Receive Date: 20211029
  Receipt Date: 20211029
  Transmission Date: 20220303
  Serious: No
  Sender: FDA-Public Use
  Company Number: None

PATIENT
  Sex: Female
  Weight: 63.45 kg

DRUGS (2)
  1. IBRANCE [Suspect]
     Active Substance: PALBOCICLIB
     Dosage: OTHER FREQUENCY : QD X21OF 28 DAYS;?
     Route: 048
  2. XGEVA [Suspect]
     Active Substance: DENOSUMAB
     Dosage: OTHER FREQUENCY : Q21D;?
     Route: 058

REACTIONS (1)
  - Disease progression [None]
